FAERS Safety Report 8350756-0 (Version None)
Quarter: 2012Q2

REPORT INFORMATION
  Report Type: 
  Country: None (occurrence: None)
  Receive Date: 20120510
  Receipt Date: 20120503
  Transmission Date: 20120825
  Serious: Yes (Congenital Anomaly)
  Sender: FDA-Public Use
  Company Number: US-GLAXOSMITHKLINE-A0976966A

PATIENT
  Sex: Female
  Weight: 4.2 kg

DRUGS (3)
  1. PAXIL [Suspect]
     Indication: PRODUCT USED FOR UNKNOWN INDICATION
     Dosage: 30MG PER DAY
     Route: 064
  2. XANAX [Concomitant]
  3. LABETALOL HCL [Concomitant]

REACTIONS (7)
  - SPINA BIFIDA [None]
  - NEUROGENIC BLADDER [None]
  - MENINGOMYELOCELE [None]
  - HIP DYSPLASIA [None]
  - NEUROGENIC BOWEL [None]
  - TALIPES [None]
  - FOETAL EXPOSURE DURING PREGNANCY [None]
